FAERS Safety Report 7605626-X (Version None)
Quarter: 2011Q3

REPORT INFORMATION
  Report Type: 
  Country: None (occurrence: None)
  Receive Date: 20110713
  Receipt Date: 20110706
  Transmission Date: 20111222
  Serious: Yes (Hospitalization)
  Sender: FDA-Public Use
  Company Number: FR-SANOFI-AVENTIS-2011SA042771

PATIENT
  Age: 54 Year
  Sex: Female

DRUGS (3)
  1. RITUXAN [Suspect]
     Route: 065
     Dates: start: 20110616, end: 20110623
  2. PLAQUENIL [Suspect]
     Route: 048
  3. PREDNISONE [Concomitant]
     Indication: ALLERGY PROPHYLAXIS
     Route: 065

REACTIONS (4)
  - SERUM SICKNESS [None]
  - ARTHRALGIA [None]
  - COMPLEMENT FACTOR DECREASED [None]
  - RASH [None]
